FAERS Safety Report 24743412 (Version 1)
Quarter: 2024Q4

REPORT INFORMATION
  Report Type: Spontaneous
  Country: US (occurrence: US)
  Receive Date: 20241217
  Receipt Date: 20241217
  Transmission Date: 20250115
  Serious: No
  Sender: RECKITT BENCKISER
  Company Number: US-PROD-AS2-212756134-RB-082702-2024

PATIENT
  Age: 71 Year
  Sex: Female

DRUGS (2)
  1. DELSYM [Suspect]
     Active Substance: DEXTROMETHORPHAN
     Indication: Cough
     Dosage: UNKNOWN, BID (ONE DOSAGE EVERY 12 HOURS; AMOUNT USED: 03 DOSES)
     Route: 048
     Dates: start: 20240115, end: 20240116
  2. ROBITUSSIN (GUAIFENESIN) [Concomitant]
     Active Substance: GUAIFENESIN
     Indication: Cough
     Dosage: UNK
     Route: 065
     Dates: start: 202401

REACTIONS (1)
  - Drug ineffective [Recovered/Resolved]
